FAERS Safety Report 6604205-0 (Version None)
Quarter: 2010Q1

REPORT INFORMATION
  Report Type: 
  Country: None (occurrence: None)
  Receive Date: 20100226
  Receipt Date: 20090702
  Transmission Date: 20100710
  Serious: No
  Sender: FDA-Public Use
  Company Number: A0795256A

PATIENT
  Age: 39 Year
  Sex: Female

DRUGS (4)
  1. LAMICTAL CD [Suspect]
     Indication: BIPOLAR DISORDER
     Dosage: 50MG PER DAY
     Route: 048
     Dates: start: 20090501, end: 20090701
  2. HYDROCHLOROTHIAZIDE [Suspect]
     Indication: BLOOD PRESSURE
     Dosage: 12.5MG PER DAY
     Route: 048
     Dates: start: 20090516
  3. LISINOPRIL [Suspect]
     Indication: BLOOD PRESSURE
     Dosage: 5MG PER DAY
     Route: 048
     Dates: start: 20090624
  4. LORAZEPAM [Concomitant]

REACTIONS (5)
  - DIZZINESS [None]
  - DYSPNOEA [None]
  - NAUSEA [None]
  - RASH [None]
  - VOMITING [None]
